FAERS Safety Report 6993184-2 (Version None)
Quarter: 2010Q3

REPORT INFORMATION
  Report Type: 
  Country: None (occurrence: None)
  Receive Date: 20100917
  Receipt Date: 20091216
  Transmission Date: 20110219
  Serious: Yes (Other)
  Sender: FDA-Public Use
  Company Number: US-ASTRAZENECA-2009UW21228

PATIENT
  Age: 673 Month
  Sex: Male
  Weight: 83.9 kg

DRUGS (7)
  1. SEROQUEL [Suspect]
     Indication: MAJOR DEPRESSION
     Route: 048
     Dates: start: 20060101, end: 20090601
  2. SEROQUEL [Suspect]
     Indication: POST-TRAUMATIC STRESS DISORDER
     Route: 048
     Dates: start: 20060101, end: 20090601
  3. CLOZARIL [Concomitant]
  4. GEODON [Concomitant]
  5. ALPRAZOLAM [Concomitant]
     Dates: start: 20080101
  6. VENLAFAXINE [Concomitant]
     Dates: start: 20080101
  7. TRAZODONE HCL [Concomitant]
     Dates: start: 20080101

REACTIONS (3)
  - DIABETES MELLITUS [None]
  - KETOACIDOSIS [None]
  - PANCREATITIS [None]
